FAERS Safety Report 6499766-9 (Version None)
Quarter: 2009Q4

REPORT INFORMATION
  Report Type: 
  Country: None (occurrence: None)
  Receive Date: 20091215
  Receipt Date: 20091211
  Transmission Date: 20100525
  Serious: Yes (Other)
  Sender: FDA-Public Use
  Company Number: IE-MERCK-0911GBR00072

PATIENT
  Age: 56 Year
  Sex: Male

DRUGS (6)
  1. ZETIA [Suspect]
     Indication: HYPERCHOLESTEROLAEMIA
     Route: 048
     Dates: start: 20090730, end: 20090101
  2. ZETIA [Suspect]
     Route: 048
     Dates: start: 20090101, end: 20091105
  3. BISOPROLOL [Concomitant]
     Route: 065
  4. PLAVIX [Concomitant]
     Route: 065
  5. CRESTOR [Concomitant]
     Route: 065
  6. NU-SEALS [Concomitant]
     Route: 065

REACTIONS (1)
  - RASH PRURITIC [None]
